FAERS Safety Report 6612632-0 (Version None)
Quarter: 2010Q1

REPORT INFORMATION
  Report Type: 
  Country: None (occurrence: None)
  Receive Date: 20100303
  Receipt Date: 20100224
  Transmission Date: 20100710
  Serious: Yes (Other)
  Sender: FDA-Public Use
  Company Number: US-B.I. PHARMACEUTICALS,INC./RIDGEFIELD-2010-BP-02272BP

PATIENT

DRUGS (3)
  1. FLOMAX [Suspect]
     Indication: DRUG USE FOR UNKNOWN INDICATION
  2. AVODART [Suspect]
     Indication: DRUG USE FOR UNKNOWN INDICATION
  3. VIAGRA [Suspect]
     Indication: DRUG USE FOR UNKNOWN INDICATION

REACTIONS (1)
  - ANGINA PECTORIS [None]
